FAERS Safety Report 25433963 (Version 1)
Quarter: 2025Q2

REPORT INFORMATION
  Report Type: Spontaneous
  Country: US (occurrence: US)
  Receive Date: 20250613
  Receipt Date: 20250613
  Transmission Date: 20250717
  Serious: Yes (Other)
  Sender: PFIZER
  Company Number: US-PFIZER INC-202500120593

PATIENT

DRUGS (2)
  1. ENCORAFENIB [Suspect]
     Active Substance: ENCORAFENIB
     Indication: Lung neoplasm malignant
  2. BINIMETINIB [Suspect]
     Active Substance: BINIMETINIB
     Indication: Lung neoplasm malignant

REACTIONS (1)
  - Cardiac tamponade [Unknown]
